FAERS Safety Report 20488703 (Version 1)
Quarter: 2022Q1

REPORT INFORMATION
  Report Type: Other
  Country: DE (occurrence: DE)
  Receive Date: 20220218
  Receipt Date: 20220218
  Transmission Date: 20220423
  Serious: Yes (Other)
  Sender: FDA-Public Use
  Company Number: None

PATIENT
  Age: 56 Year
  Sex: Male

DRUGS (1)
  1. LEVETIRACETAM [Suspect]
     Active Substance: LEVETIRACETAM
     Indication: Product used for unknown indication
     Dosage: 300 MILLIGRAM, BID (DAILY DOSE: 600 MG MILLGRAM(S) EVERY DAYS 2 SEPARATED DOSES)
     Route: 048
     Dates: start: 20201120, end: 20201222

REACTIONS (3)
  - Swelling [Unknown]
  - Erythema [Unknown]
  - Cutaneous vasculitis [Unknown]

NARRATIVE: CASE EVENT DATE: 20201221
